FAERS Safety Report 15498480 (Version 1)
Quarter: 2018Q4

REPORT INFORMATION
  Report Type: Spontaneous
  Country: US (occurrence: US)
  Receive Date: 20181005
  Receipt Date: 20181005
  Transmission Date: 20190205
  Serious: Yes (Hospitalization)
  Sender: FDA-Public Use
  Company Number: None

PATIENT
  Age: 79 Year
  Sex: Male
  Weight: 124.28 kg

DRUGS (1)
  1. AMIODARONE [Suspect]
     Active Substance: AMIODARONE
     Indication: ATRIAL FLUTTER
     Route: 048
     Dates: start: 20180319, end: 20180903

REACTIONS (3)
  - Pulmonary toxicity [None]
  - Dyspnoea exertional [None]
  - Dyspnoea [None]

NARRATIVE: CASE EVENT DATE: 20180903
